FAERS Safety Report 4978846-0 (Version None)
Quarter: 2006Q2

REPORT INFORMATION
  Report Type: 
  Country: None (occurrence: None)
  Receive Date: 20060417
  Receipt Date: 20060407
  Transmission Date: 20061013
  Serious: Yes (Hospitalization)
  Sender: FDA-Public Use
  Company Number: B0418625A

PATIENT
  Age: 18 Year
  Sex: Female
  Weight: 34.927 kg

DRUGS (1)
  1. FLUTICASONE PROPIONATE [Suspect]
     Indication: ASTHMA
     Dosage: INHALED
     Route: 055

REACTIONS (7)
  - ALLERGIC GRANULOMATOUS ANGIITIS [None]
  - ARTHRALGIA [None]
  - DRUG HYPERSENSITIVITY [None]
  - DRUG RESISTANCE [None]
  - OCCULT BLOOD [None]
  - PLEURISY [None]
  - TACHYPHYLAXIS [None]
